FAERS Safety Report 16164961 (Version 1)
Quarter: 2019Q2

REPORT INFORMATION
  Report Type: Spontaneous
  Country: US (occurrence: US)
  Receive Date: 20190405
  Receipt Date: 20190405
  Transmission Date: 20190711
  Serious: No
  Sender: FDA-Public Use
  Company Number: US-TEVA-2019-US-1024674

PATIENT
  Sex: Female

DRUGS (2)
  1. BUPRENORPHINE PATCH TEVA [Suspect]
     Active Substance: BUPRENORPHINE
     Indication: NEURALGIA
  2. BUPRENORPHINE PATCH TEVA [Suspect]
     Active Substance: BUPRENORPHINE
     Indication: PAIN IN EXTREMITY
     Dosage: DOSE STRENGTH 15 MCG/HR
     Route: 061
     Dates: start: 20190304

REACTIONS (1)
  - Drug ineffective [Unknown]

NARRATIVE: CASE EVENT DATE: 201903
